FAERS Safety Report 20939339 (Version 5)
Quarter: 2025Q2

REPORT INFORMATION
  Report Type: Report from Study
  Country: CA (occurrence: CA)
  Receive Date: 20220609
  Receipt Date: 20250429
  Transmission Date: 20250717
  Serious: Yes (Other)
  Sender: TAKEDA
  Company Number: CA-TAKEDA-2022TUS038164

PATIENT
  Age: 22 Year
  Sex: Male

DRUGS (7)
  1. VEDOLIZUMAB [Suspect]
     Active Substance: VEDOLIZUMAB
     Indication: Colitis ulcerative
  2. VEDOLIZUMAB [Suspect]
     Active Substance: VEDOLIZUMAB
     Dosage: 300 MILLIGRAM, Q4WEEKS
     Dates: start: 20220627
  3. VEDOLIZUMAB [Suspect]
     Active Substance: VEDOLIZUMAB
     Dosage: 300 MILLIGRAM, Q4WEEKS
  4. VEDOLIZUMAB [Suspect]
     Active Substance: VEDOLIZUMAB
     Dosage: 300 MILLIGRAM, Q4WEEKS
     Dates: end: 20250324
  5. IMURAN [Concomitant]
     Active Substance: AZATHIOPRINE
  6. INFLECTRA [Concomitant]
     Active Substance: INFLIXIMAB-DYYB
  7. PREDNISONE [Concomitant]
     Active Substance: PREDNISONE

REACTIONS (4)
  - Colitis ulcerative [Recovering/Resolving]
  - Weight decreased [Recovering/Resolving]
  - Off label use [Unknown]
  - Drug ineffective [Unknown]

NARRATIVE: CASE EVENT DATE: 20220627
